FAERS Safety Report 11110446 (Version 1)
Quarter: 2015Q2

REPORT INFORMATION
  Report Type: Spontaneous
  Country: US (occurrence: None)
  Receive Date: 20150512
  Receipt Date: 20150512
  Transmission Date: 20150821
  Serious: Yes (Hospitalization)
  Sender: FDA-Public Use
  Company Number: None

PATIENT
  Age: 67 Year
  Sex: Male
  Weight: 133.5 kg

DRUGS (1)
  1. REGORAFENIB [Suspect]
     Active Substance: REGORAFENIB
     Indication: RECTAL ADENOCARCINOMA
     Dates: start: 20141024, end: 20141209

REACTIONS (4)
  - Nephrotic syndrome [None]
  - Acute kidney injury [None]
  - Nephritic syndrome [None]
  - Renal tubular necrosis [None]

NARRATIVE: CASE EVENT DATE: 20150105
